FAERS Safety Report 22974964 (Version 3)
Quarter: 2023Q4

REPORT INFORMATION
  Report Type: Report from Study
  Country: US (occurrence: US)
  Receive Date: 20230923
  Receipt Date: 20231003
  Transmission Date: 20240110
  Serious: Yes (Death, Hospitalization, Other)
  Sender: FDA-Public Use
  Company Number: US-002147023-NVSC2022US288237

PATIENT
  Sex: Male
  Weight: 91.625 kg

DRUGS (6)
  1. TREPROSTINIL [Suspect]
     Active Substance: TREPROSTINIL
     Dosage: 12 NG/KG/MIN, CONT
     Route: 042
  2. TREPROSTINIL [Suspect]
     Active Substance: TREPROSTINIL
     Indication: Pulmonary arterial hypertension
     Dosage: 7 NG/KG/MIN, CONT
     Route: 042
     Dates: start: 20220612
  3. TREPROSTINIL [Suspect]
     Active Substance: TREPROSTINIL
     Dosage: 50 NG/KG PER MIN, CONT
     Route: 042
     Dates: start: 20221206
  4. TREPROSTINIL [Suspect]
     Active Substance: TREPROSTINIL
     Dosage: 12 NG/KG/MIN, CONT
     Route: 042
     Dates: start: 20231206
  5. ADEMPAS [Concomitant]
     Active Substance: RIOCIGUAT
     Indication: Product used for unknown indication
     Dosage: UNK
     Route: 065
  6. OPSUMIT [Concomitant]
     Active Substance: MACITENTAN
     Indication: Product used for unknown indication
     Dosage: UNK
     Route: 065

REACTIONS (14)
  - Adenocarcinoma metastatic [Fatal]
  - Hospitalisation [Unknown]
  - Flushing [Unknown]
  - Chills [Unknown]
  - Nasopharyngitis [Unknown]
  - Headache [Unknown]
  - Diarrhoea [Unknown]
  - Pain in jaw [Recovered/Resolved]
  - Nausea [Unknown]
  - Pain in extremity [Recovered/Resolved]
  - Skin sensitisation [Unknown]
  - Liquid product physical issue [Unknown]
  - Product packaging issue [Unknown]
  - Product container issue [Unknown]
